FAERS Safety Report 24610836 (Version 1)
Quarter: 2024Q4

REPORT INFORMATION
  Report Type: Report from Study
  Country: US (occurrence: US)
  Receive Date: 20241112
  Receipt Date: 20241112
  Transmission Date: 20250114
  Serious: Yes (Death)
  Sender: ABBVIE
  Company Number: US-ABBVIE-6001158

PATIENT
  Age: 78 Year
  Sex: Male

DRUGS (1)
  1. VENCLEXTA [Suspect]
     Active Substance: VENETOCLAX
     Indication: Acute myeloid leukaemia
     Dosage: STRENGTH- 100 MG
     Route: 048
     Dates: start: 202405

REACTIONS (3)
  - Acute myeloid leukaemia [Fatal]
  - Sepsis [Fatal]
  - Femur fracture [Fatal]

NARRATIVE: CASE EVENT DATE: 20240101
